FAERS Safety Report 8134029-7 (Version None)
Quarter: 2012Q1

REPORT INFORMATION
  Report Type: 
  Country: None (occurrence: None)
  Receive Date: 20120214
  Receipt Date: 20120201
  Transmission Date: 20120608
  Serious: No
  Sender: FDA-Public Use
  Company Number: US-B.I. PHARMACEUTICALS,INC./RIDGEFIELD-2011-BP-27802BP

PATIENT
  Sex: Male

DRUGS (1)
  1. CATAPRES-TTS-1 [Suspect]
     Indication: HYPERTENSION
     Route: 061

REACTIONS (3)
  - BLISTER [None]
  - SCAR [None]
  - DERMATITIS CONTACT [None]
